FAERS Safety Report 21872078 (Version 1)
Quarter: 2023Q1

REPORT INFORMATION
  Report Type: Spontaneous
  Country: US (occurrence: None)
  Receive Date: 20230114
  Receipt Date: 20230114
  Transmission Date: 20230417
  Serious: Yes (Disabling)
  Sender: FDA-Public Use
  Company Number: None

PATIENT
  Age: 59 Year
  Sex: Female
  Weight: 78.75 kg

DRUGS (7)
  1. ELIQUIS [Suspect]
     Active Substance: APIXABAN
     Indication: Anticoagulant therapy
     Dosage: OTHER QUANTITY : 1 TABLET(S);?FREQUENCY : TWICE A DAY;?
     Route: 048
     Dates: start: 20190319
  2. ELIQUIS [Concomitant]
     Active Substance: APIXABAN
  3. Walk with a cane [Concomitant]
  4. Railings in house for balance assistance [Concomitant]
  5. Pre and probiotic. Immune system support [Concomitant]
  6. VITAMINS [Concomitant]
     Active Substance: VITAMINS
  7. XARELTO [Suspect]
     Active Substance: RIVAROXABAN

REACTIONS (6)
  - Neuropathy peripheral [None]
  - Liver disorder [None]
  - Thrombosis [None]
  - Headache [None]
  - Hypoaesthesia [None]
  - Paraesthesia [None]

NARRATIVE: CASE EVENT DATE: 20190501
